FAERS Safety Report 7358285-8 (Version None)
Quarter: 2011Q1

REPORT INFORMATION
  Report Type: 
  Country: None (occurrence: None)
  Receive Date: 20110307
  Receipt Date: 20100518
  Transmission Date: 20110831
  Serious: No
  Sender: FDA-Public Use
  Company Number: AEUSA201000204

PATIENT
  Age: 41 Year
  Sex: Male
  Weight: 71.6683 kg

DRUGS (4)
  1. SPIRIVA [Concomitant]
  2. ALBUTEROL [Concomitant]
  3. PROLASTIN [Suspect]
     Indication: ALPHA-1 ANTI-TRYPSIN DEFICIENCY
     Dosage: IV
     Route: 042
  4. FORADIL [Concomitant]

REACTIONS (1)
  - DYSPNOEA [None]
